FAERS Safety Report 13054732 (Version 1)
Quarter: 2016Q4

REPORT INFORMATION
  Report Type: Spontaneous
  Country: US (occurrence: US)
  Receive Date: 20161222
  Receipt Date: 20161222
  Transmission Date: 20170207
  Serious: No
  Sender: FDA-Public Use
  Company Number: None

PATIENT
  Age: 33 Year
  Sex: Female
  Weight: 71.1 kg

DRUGS (1)
  1. BUPROPION HYDROCHLORIDE XL [Suspect]
     Active Substance: BUPROPION HYDROCHLORIDE
     Indication: DEPRESSION
     Dosage: ?          QUANTITY:1 CAPSULE(S);?
     Route: 048
     Dates: start: 20161214

REACTIONS (8)
  - Tremor [None]
  - Urine flow decreased [None]
  - Vaginal haemorrhage [None]
  - Judgement impaired [None]
  - Headache [None]
  - Product quality issue [None]
  - Drug effect faster than expected [None]
  - Anxiety [None]

NARRATIVE: CASE EVENT DATE: 20161214
